FAERS Safety Report 6372421-1 (Version None)
Quarter: 2009Q3

REPORT INFORMATION
  Report Type: 
  Country: None (occurrence: None)
  Receive Date: 20090924
  Receipt Date: 20080829
  Transmission Date: 20100115
  Serious: Yes (Hospitalization)
  Sender: FDA-Public Use
  Company Number: US-ASTRAZENECA-2008UW17760

PATIENT
  Sex: Female

DRUGS (7)
  1. SEROQUEL [Suspect]
     Indication: BIPOLAR DISORDER
     Route: 048
  2. ARIMIDEX [Concomitant]
     Route: 048
  3. LAMICTAL [Concomitant]
  4. RISPERDAL [Concomitant]
  5. ADDERALL 10 [Concomitant]
  6. XANAX [Concomitant]
  7. SYNTHROID [Concomitant]

REACTIONS (4)
  - AMNESIA [None]
  - ANGER [None]
  - MANIA [None]
  - SOMNOLENCE [None]
